FAERS Safety Report 6348585-2 (Version None)
Quarter: 2009Q3

REPORT INFORMATION
  Report Type: 
  Country: None (occurrence: None)
  Receive Date: 20090911
  Receipt Date: 20090828
  Transmission Date: 20100115
  Serious: Yes (Hospitalization, Other)
  Sender: FDA-Public Use
  Company Number: JP-ROCHE-638953

PATIENT
  Sex: Female

DRUGS (13)
  1. CAPECITABINE [Suspect]
     Indication: BREAST CANCER RECURRENT
     Route: 048
     Dates: start: 20090512, end: 20090526
  2. TAXOTERE [Suspect]
     Indication: BREAST CANCER RECURRENT
     Route: 041
     Dates: start: 20090512, end: 20090512
  3. NOVOLIN R [Concomitant]
     Dosage: DOSE: 6 UT 1 PER 1 DAY, NOTE: 6.5.6.0UNITS
     Route: 058
  4. NOVOLIN R [Concomitant]
     Dosage: DOSE: 17 UT 1 PER 1 DAY, NOTE: 0.0.0.6 UNITS
     Route: 058
  5. MAGMITT [Concomitant]
     Route: 048
  6. AMOBAN [Concomitant]
     Route: 048
  7. MAINTATE [Concomitant]
     Route: 048
     Dates: start: 20090512
  8. ASPIRIN [Concomitant]
     Dosage: FORM: ENTERIC
     Route: 048
     Dates: start: 20090512
  9. MEVALOTIN [Concomitant]
     Route: 048
     Dates: start: 20090512
  10. LOXOPROFEN [Concomitant]
     Dosage: TAKEN AS NEEDED
     Route: 048
     Dates: start: 20090512
  11. MUCOSTA [Concomitant]
     Dosage: TAKEN AS NEEDE
     Route: 048
     Dates: start: 20090512
  12. PYRIDOXINIUM CHLORIDE [Concomitant]
     Dosage: DRUG: ADEROXIN
     Route: 048
     Dates: start: 20090512
  13. HIRUDOID [Concomitant]
     Dosage: TAKEN AS NEEDED, DOSAGE ADJUSTED.
     Route: 061
     Dates: start: 20090512

REACTIONS (9)
  - CELLULITIS [None]
  - CYSTITIS [None]
  - FEBRILE NEUTROPENIA [None]
  - HAEMOGLOBIN DECREASED [None]
  - HYPOALBUMINAEMIA [None]
  - IRON DEFICIENCY ANAEMIA [None]
  - NEUROPATHY PERIPHERAL [None]
  - OSTEOMYELITIS [None]
  - PYREXIA [None]
